FAERS Safety Report 9507680 (Version 1)
Quarter: 2013Q1

REPORT INFORMATION
  Report Type: Spontaneous
  Country: US (occurrence: None)
  Receive Date: 20130305
  Receipt Date: 20130305
  Transmission Date: 20140127
  Serious: Yes (Other)
  Sender: FDA-Public Use
  Company Number: 163-21880-12120139

PATIENT
  Age: 77 Year
  Sex: Female

DRUGS (1)
  1. REVLIMID (LENALIDOMIDE) (15 MILLIGRAM, CAPSULES) [Suspect]
     Indication: PLASMA CELL MYELOMA
     Route: 048
     Dates: start: 200801

REACTIONS (10)
  - Sinus disorder [None]
  - Sensitivity of teeth [None]
  - Insomnia [None]
  - Dyspepsia [None]
  - Diarrhoea [None]
  - Constipation [None]
  - Blood pressure increased [None]
  - Back pain [None]
  - Neuropathy peripheral [None]
  - Erythema [None]
